FAERS Safety Report 10365003 (Version 1)
Quarter: 2014Q3

REPORT INFORMATION
  Report Type: Spontaneous
  Country: US (occurrence: None)
  Receive Date: 20140804
  Receipt Date: 20140804
  Transmission Date: 20150326
  Serious: No
  Sender: FDA-Public Use
  Company Number: None

PATIENT
  Age: 46 Year
  Sex: Male
  Weight: 106.6 kg

DRUGS (1)
  1. BELVIQ [Suspect]
     Active Substance: LORCASERIN HYDROCHLORIDE
     Indication: WEIGHT DECREASED
     Dosage: 369890   TWICE DAILY  TAKEN BY MOUTH
     Route: 048

REACTIONS (4)
  - Headache [None]
  - Product quality issue [None]
  - No reaction on previous exposure to drug [None]
  - Fatigue [None]

NARRATIVE: CASE EVENT DATE: 20140728
